FAERS Safety Report 6034233-8 (Version None)
Quarter: 2009Q1

REPORT INFORMATION
  Report Type: 
  Country: None (occurrence: None)
  Receive Date: 20090112
  Receipt Date: 20090107
  Transmission Date: 20090719
  Serious: Yes (Death)
  Sender: FDA-Public Use
  Company Number: CA-ELI_LILLY_AND_COMPANY-CA200901001122

PATIENT
  Sex: Male

DRUGS (2)
  1. XIGRIS [Suspect]
     Indication: SEPSIS
     Dosage: 20 MG, UNK
     Route: 030
  2. XIGRIS [Suspect]
     Dosage: 20 MG, UNK
     Route: 030

REACTIONS (1)
  - DEATH [None]
